FAERS Safety Report 9624372 (Version 1)
Quarter: 2013Q4

REPORT INFORMATION
  Report Type: Spontaneous
  Country: US (occurrence: US)
  Receive Date: 20131015
  Receipt Date: 20131015
  Transmission Date: 20140711
  Serious: No
  Sender: FDA-Public Use
  Company Number: US-PFIZER INC-2013293448

PATIENT
  Sex: Female

DRUGS (4)
  1. EFFEXOR XR [Suspect]
     Indication: ANXIETY
     Dosage: UNK
  2. EFFEXOR XR [Suspect]
     Indication: DEPRESSION
  3. EFFEXOR [Suspect]
     Indication: ANXIETY
     Dosage: 75 MG, UNK
  4. EFFEXOR [Suspect]
     Indication: DEPRESSION
     Dosage: 37.5 MG, UNK

REACTIONS (6)
  - Drug withdrawal syndrome [Unknown]
  - Balance disorder [Unknown]
  - Musculoskeletal stiffness [Unknown]
  - Pain [Unknown]
  - Malaise [Unknown]
  - Abdominal discomfort [Unknown]
